FAERS Safety Report 4757036-0 (Version None)
Quarter: 2005Q3

REPORT INFORMATION
  Report Type: 
  Country: None (occurrence: None)
  Receive Date: 20050829
  Receipt Date: 20050829
  Transmission Date: 20060218
  Serious: Yes (Death)
  Sender: FDA-Public Use
  Company Number: None

PATIENT
  Age: 58 Year
  Sex: Female
  Weight: 51.2565 kg

DRUGS (2)
  1. TRAZODONE 50MG [Suspect]
     Dosage: 1 NIGHTLY ORAL
     Route: 048
  2. CELEXA [Suspect]
     Dosage: 2 MORNING ORAL
     Route: 048

REACTIONS (2)
  - COMPLETED SUICIDE [None]
  - GUN SHOT WOUND [None]
